FAERS Safety Report 9249756 (Version 1)
Quarter: 2013Q2

REPORT INFORMATION
  Report Type: Spontaneous
  Country: FR (occurrence: FR)
  Receive Date: 20130423
  Receipt Date: 20130423
  Transmission Date: 20140414
  Serious: Yes (Life-Threatening, Hospitalization)
  Sender: FDA-Public Use
  Company Number: FR-B.I. PHARMACEUTICALS,INC./RIDGEFIELD-2013-FF-01230FF

PATIENT
  Age: 85 Year
  Sex: Female
  Weight: 59 kg

DRUGS (14)
  1. PRADAXA [Suspect]
     Indication: ATRIAL FIBRILLATION
     Dosage: 220 MG
     Route: 048
  2. SECTRAL [Concomitant]
     Dosage: 400 MG
  3. CORDARONE [Concomitant]
  4. INEXIUM [Concomitant]
     Dosage: 20 MG
  5. CETORNAN [Concomitant]
     Dosage: 10 NR
  6. KARDEGIC [Concomitant]
     Dosage: 75 MG
  7. SEROPLEX [Concomitant]
  8. DOLIPRANE [Concomitant]
     Dosage: 3 G
  9. FORLAX [Concomitant]
  10. EDUCTYL [Concomitant]
  11. AMLOR [Concomitant]
  12. LOVENOX [Concomitant]
     Route: 058
  13. CONTRAMAL [Concomitant]
     Dosage: 50 MG
  14. COVERSYL [Concomitant]

REACTIONS (4)
  - Cardio-respiratory arrest [Recovered/Resolved]
  - Lung disorder [Recovered/Resolved]
  - Ischaemic stroke [Unknown]
  - Hemiplegia [Unknown]
